FAERS Safety Report 16711051 (Version 2)
Quarter: 2019Q3

REPORT INFORMATION
  Report Type: Spontaneous
  Country: US (occurrence: US)
  Receive Date: 20190816
  Receipt Date: 20190829
  Transmission Date: 20191004
  Serious: No
  Sender: FDA-Public Use
  Company Number: US-GLAXOSMITHKLINE-US2019145842

PATIENT
  Age: 95 Year
  Sex: Female

DRUGS (1)
  1. VOLTAREN [Suspect]
     Active Substance: DICLOFENAC SODIUM
     Indication: PAIN
     Dosage: UNK
     Route: 061

REACTIONS (3)
  - Pain in extremity [Recovered/Resolved]
  - Product complaint [Unknown]
  - Circumstance or information capable of leading to medication error [Unknown]
